FAERS Safety Report 5768252-3 (Version None)
Quarter: 2008Q2

REPORT INFORMATION
  Report Type: 
  Country: None (occurrence: None)
  Receive Date: 20080612
  Receipt Date: 20080407
  Transmission Date: 20081010
  Serious: No
  Sender: FDA-Public Use
  Company Number: US-ABBOTT-07P-163-0373127-00

PATIENT
  Sex: Female
  Weight: 81.266 kg

DRUGS (5)
  1. HUMIRA [Suspect]
     Indication: CROHN'S DISEASE
     Route: 058
     Dates: start: 20070701
  2. VITAMIN TAB [Concomitant]
     Indication: PREGNANCY
     Route: 048
     Dates: start: 20070701
  3. ESCITALOPRAM OXALATE [Concomitant]
     Indication: ANXIETY
     Route: 048
     Dates: start: 20070701
  4. ULTAM [Concomitant]
     Indication: ARTHRALGIA
     Route: 048
     Dates: start: 20080324
  5. HYDROCODONE [Concomitant]
     Indication: MIGRAINE
     Route: 048

REACTIONS (7)
  - ARTHRALGIA [None]
  - CROHN'S DISEASE [None]
  - DRUG INEFFECTIVE [None]
  - GASTROINTESTINAL PAIN [None]
  - INJECTION SITE BRUISING [None]
  - INJECTION SITE PAIN [None]
  - UNDERDOSE [None]
